FAERS Safety Report 14978837 (Version 1)
Quarter: 2018Q2

REPORT INFORMATION
  Report Type: Spontaneous
  Country: US (occurrence: US)
  Receive Date: 20180606
  Receipt Date: 20180606
  Transmission Date: 20180711
  Serious: Yes (Hospitalization)
  Sender: FDA-Public Use
  Company Number: US-PFIZER INC-2018187958

PATIENT
  Age: 86 Year
  Sex: Male

DRUGS (2)
  1. PREPARATION H SUPPOSITORY [Suspect]
     Active Substance: COCOA BUTTER\PHENYLEPHRINE HYDROCHLORIDE
     Indication: HAEMORRHOIDS
  2. PREPARATION H SUPPOSITORY [Suspect]
     Active Substance: COCOA BUTTER\PHENYLEPHRINE HYDROCHLORIDE
     Indication: HAEMORRHOIDAL HAEMORRHAGE
     Dosage: UNK UNK, 1X/DAY
     Dates: start: 201805, end: 2018

REACTIONS (6)
  - Condition aggravated [Recovered/Resolved]
  - Drug ineffective [Unknown]
  - Intentional product misuse [Unknown]
  - Haemorrhoidal haemorrhage [Recovered/Resolved]
  - Haemorrhoids [Unknown]
  - Disease recurrence [Unknown]

NARRATIVE: CASE EVENT DATE: 2018
